FAERS Safety Report 15243792 (Version 5)
Quarter: 2019Q4

REPORT INFORMATION
  Report Type: Spontaneous
  Country: US (occurrence: US)
  Receive Date: 20180806
  Receipt Date: 20191030
  Transmission Date: 20200122
  Serious: No
  Sender: FDA-Public Use
  Company Number: US-SA-2018SA208750

PATIENT
  Age: 71 Year
  Sex: Female

DRUGS (2)
  1. DUPIXENT [Suspect]
     Active Substance: DUPILUMAB
     Indication: DERMATITIS ATOPIC
     Dosage: 600 MG, 1X
     Route: 058
     Dates: start: 201806, end: 201806
  2. DUPIXENT [Suspect]
     Active Substance: DUPILUMAB
     Dosage: 300 MG, QOW
     Route: 058
     Dates: start: 2018

REACTIONS (9)
  - Stress [Unknown]
  - Tooth disorder [Unknown]
  - Pruritus [Unknown]
  - Osteopenia [Unknown]
  - Drug ineffective [Unknown]
  - Pain in extremity [Unknown]
  - Sensitive skin [Unknown]
  - Dermatitis atopic [Unknown]
  - Toothache [Unknown]

NARRATIVE: CASE EVENT DATE: 2018
